FAERS Safety Report 15334687 (Version 1)
Quarter: 2018Q3

REPORT INFORMATION
  Report Type: Report from Study
  Country: JP (occurrence: JP)
  Receive Date: 20180830
  Receipt Date: 20180830
  Transmission Date: 20181010
  Serious: Yes (Hospitalization)
  Sender: FDA-Public Use
  Company Number: JP-SA-2018SA234471

PATIENT
  Age: 71 Year

DRUGS (2)
  1. SEVELAMER HYDROCHLORIDE [Suspect]
     Active Substance: SEVELAMER HYDROCHLORIDE
     Indication: PRODUCT USED FOR UNKNOWN INDICATION
     Dosage: UNK
     Route: 048
     Dates: start: 20150718, end: 20150815
  2. NESP [Suspect]
     Active Substance: DARBEPOETIN ALFA
     Indication: PRODUCT USED FOR UNKNOWN INDICATION
     Dosage: UNK
     Route: 042
     Dates: start: 20130911, end: 20171003

REACTIONS (4)
  - Pleural effusion [Unknown]
  - Arteriovenous fistula site complication [Recovering/Resolving]
  - Depression [Recovering/Resolving]
  - Hospitalisation [Recovering/Resolving]

NARRATIVE: CASE EVENT DATE: 20160422
